FAERS Safety Report 15636466 (Version 1)
Quarter: 2018Q4

REPORT INFORMATION
  Report Type: Spontaneous
  Country: US (occurrence: US)
  Receive Date: 20181120
  Receipt Date: 20181120
  Transmission Date: 20190205
  Serious: Yes (Other)
  Sender: FDA-Public Use
  Company Number: US-TORRENT-00007216

PATIENT
  Age: 44 Year
  Sex: Female

DRUGS (3)
  1. CIPROFLOXACIN. [Suspect]
     Active Substance: CIPROFLOXACIN
     Indication: PNEUMONIA
     Dosage: TWO DOSES OF INTRAVENOUS 400 MG OF CIPROFLOXACIN
     Route: 042
  2. LEVOFLOXACIN. [Suspect]
     Active Substance: LEVOFLOXACIN
     Indication: PNEUMONIA
     Dosage: UNKNOWN
     Route: 048
  3. FLUTICASONE PROPIONATE. [Suspect]
     Active Substance: FLUTICASONE PROPIONATE
     Indication: PNEUMONIA
     Dosage: FLUTICASONE INHALER 1 PUFF TWICE A DAY
     Route: 055

REACTIONS (4)
  - Tendon disorder [Unknown]
  - Conjunctival hyperaemia [Unknown]
  - Ectropion [Recovered/Resolved]
  - Tendon rupture [Recovered/Resolved]
